FAERS Safety Report 20818452 (Version 1)
Quarter: 2022Q2

REPORT INFORMATION
  Report Type: Spontaneous
  Country: US (occurrence: US)
  Receive Date: 20220512
  Receipt Date: 20220512
  Transmission Date: 20220721
  Serious: No
  Sender: FDA-Public Use
  Company Number: US-PFIZER INC-202200123264

PATIENT
  Age: 48 Year
  Sex: Female

DRUGS (4)
  1. XELJANZ [Suspect]
     Active Substance: TOFACITINIB CITRATE
     Indication: Colitis ulcerative
     Dosage: 10 MG, 2X/DAY,(XELJANZ10MG BY MOUTH TWICE DAILY FOR 2 MONTHS)
     Route: 048
  2. XELJANZ [Suspect]
     Active Substance: TOFACITINIB CITRATE
     Dosage: 5 MG, 2X/DAY (FOR ABOUT 4-6)
     Route: 048
     Dates: start: 20210830
  3. XELJANZ [Suspect]
     Active Substance: TOFACITINIB CITRATE
     Dosage: 15 MG, 1X/DAY, (10MG TABLET IN THE MORNING AND 5MG TABLET IN EVENING FOR 2-4 WEEKS)
     Route: 048
  4. XELJANZ [Suspect]
     Active Substance: TOFACITINIB CITRATE
     Dosage: 5 MG, 2X/DAY, (5MG TWICE A DAY)
     Route: 048
     Dates: start: 202112

REACTIONS (3)
  - Off label use [Unknown]
  - Cough [Unknown]
  - Frequent bowel movements [Unknown]
